FAERS Safety Report 4768859-6 (Version None)
Quarter: 2005Q3

REPORT INFORMATION
  Report Type: 
  Country: None (occurrence: None)
  Receive Date: 20050914
  Receipt Date: 20040329
  Transmission Date: 20060218
  Serious: Yes (Hospitalization, Disabling, Other)
  Sender: FDA-Public Use
  Company Number: US-MERCK-0403USA02525

PATIENT
  Age: 46 Year
  Sex: Female
  Weight: 61 kg

DRUGS (25)
  1. ZOCOR [Concomitant]
     Indication: BLOOD CHOLESTEROL INCREASED
     Route: 048
     Dates: start: 20010821, end: 20031107
  2. ZOCOR [Concomitant]
     Route: 065
  3. ZANAFLEX [Concomitant]
     Indication: MUSCLE RELAXANT THERAPY
     Route: 065
     Dates: start: 20010119, end: 20020506
  4. AVONEX [Concomitant]
     Indication: MULTIPLE SCLEROSIS
     Route: 030
  5. PROCHLORPERAZINE [Concomitant]
     Indication: SCHIZOPHRENIA
     Route: 065
  6. ALPRAZOLAM [Concomitant]
     Indication: ANXIETY
     Route: 065
  7. LASIX [Concomitant]
     Route: 065
     Dates: start: 20010409, end: 20031210
  8. HYDROCODONE BITARTRATE [Concomitant]
     Indication: PAIN
     Route: 065
     Dates: start: 20020210, end: 20031204
  9. ACETAMINOPHEN AND PROPOXYPHENE NAPSYLATE [Concomitant]
     Route: 065
     Dates: start: 20010516, end: 20030902
  10. ESTRADERM [Concomitant]
     Route: 065
     Dates: start: 20010502, end: 20020614
  11. DURADRIN [Concomitant]
     Route: 065
  12. METHOTREXATE [Concomitant]
     Route: 065
  13. INDOMETHACIN [Concomitant]
     Route: 065
  14. KLOR-CON [Concomitant]
     Route: 065
  15. BENADRYL [Concomitant]
     Route: 065
  16. ZYPREXA [Concomitant]
     Route: 048
  17. VITAMIN E [Concomitant]
     Route: 048
  18. PROPRANOLOL HYDROCHLORIDE [Concomitant]
     Indication: ANGINA PECTORIS
     Route: 065
  19. VIOXX [Suspect]
     Indication: PAIN
     Route: 048
     Dates: start: 20020210, end: 20020319
  20. VIOXX [Suspect]
     Indication: INFLAMMATION
     Route: 048
     Dates: start: 20020210, end: 20020319
  21. NIZATIDINE [Concomitant]
     Indication: DYSPEPSIA
     Route: 065
  22. KLONOPIN [Concomitant]
     Indication: ANXIETY
     Route: 065
  23. TRAZODONE HYDROCHLORIDE [Concomitant]
     Indication: DEPRESSION
     Route: 065
  24. SEROQUEL [Concomitant]
     Indication: SCHIZOPHRENIA
     Route: 065
  25. PROZAC [Concomitant]
     Indication: DEPRESSION
     Route: 065
     Dates: start: 19950101

REACTIONS (24)
  - BACK PAIN [None]
  - BIPOLAR I DISORDER [None]
  - BLADDER DISORDER [None]
  - BODY TINEA [None]
  - CEREBRAL ARTERY OCCLUSION [None]
  - CHEST PAIN [None]
  - CHRONIC FATIGUE SYNDROME [None]
  - DEPRESSION [None]
  - DYSPNOEA [None]
  - FALL [None]
  - HEADACHE [None]
  - HEMIPARESIS [None]
  - HYPOAESTHESIA [None]
  - HYPOTENSION [None]
  - INCONTINENCE [None]
  - INSOMNIA [None]
  - LOSS OF CONSCIOUSNESS [None]
  - MIGRAINE [None]
  - MYOCARDIAL INFARCTION [None]
  - NEUROPATHIC PAIN [None]
  - NOCTURIA [None]
  - RASH [None]
  - RENAL FAILURE ACUTE [None]
  - TEMPERATURE INTOLERANCE [None]
